FAERS Safety Report 5442043-5 (Version None)
Quarter: 2007Q3

REPORT INFORMATION
  Report Type: 
  Country: None (occurrence: None)
  Receive Date: 20070904
  Receipt Date: 20070828
  Transmission Date: 20080115
  Serious: Yes (Other)
  Sender: FDA-Public Use
  Company Number: JP-AVENTIS-200712328JP

PATIENT
  Age: 40 Year
  Sex: Female

DRUGS (10)
  1. ARAVA [Suspect]
     Indication: RHEUMATOID ARTHRITIS
     Route: 048
     Dates: start: 20061102, end: 20061107
  2. ARAVA [Suspect]
     Route: 048
     Dates: start: 20061108, end: 20061116
  3. RHEUMATREX                         /00113801/ [Concomitant]
     Indication: RHEUMATOID ARTHRITIS
     Dosage: DOSE: 8 MG/WEEK
     Route: 048
     Dates: end: 20061026
  4. FOLIAMIN [Concomitant]
     Dosage: DOSE: 1 TABLET/DAY
     Route: 048
     Dates: end: 20061026
  5. LOXONIN                            /00890701/ [Concomitant]
     Indication: RHEUMATOID ARTHRITIS
     Dosage: DOSE: 2 TABLETS/DAY
     Route: 048
     Dates: end: 20061116
  6. MUCOSTA [Concomitant]
     Indication: GASTRITIS PROPHYLAXIS
     Dosage: DOSE: 3 TABLETS/DAY
     Route: 048
     Dates: end: 20061116
  7. PREDNISOLONE [Concomitant]
     Indication: RHEUMATOID ARTHRITIS
     Route: 048
  8. URSO                               /00465701/ [Concomitant]
     Dosage: DOSE: 6 TABLETS/DAY
     Route: 048
     Dates: start: 20061120, end: 20061210
  9. EBASTEL [Concomitant]
     Indication: RASH
     Dosage: DOSE: 1 TABLET/DAY
     Route: 048
     Dates: start: 20061116
  10. QUESTRAN [Concomitant]
     Indication: DRUG DETOXIFICATION
     Route: 048
     Dates: start: 20061120, end: 20061126

REACTIONS (6)
  - ALANINE AMINOTRANSFERASE INCREASED [None]
  - ASPARTATE AMINOTRANSFERASE INCREASED [None]
  - PYREXIA [None]
  - RASH [None]
  - STOMATITIS [None]
  - WHITE BLOOD CELL COUNT DECREASED [None]
